FAERS Safety Report 4383457-4 (Version None)
Quarter: 2004Q2

REPORT INFORMATION
  Report Type: 
  Country: None (occurrence: None)
  Receive Date: 20040622
  Receipt Date: 20040622
  Transmission Date: 20050107
  Serious: Yes (Hospitalization)
  Sender: FDA-Public Use
  Company Number: None

PATIENT
  Age: 73 Year
  Sex: Male
  Weight: 72.1219 kg

DRUGS (12)
  1. 13-CISRETINNIC ACID [Suspect]
     Indication: METASTATIC NEOPLASM
     Dosage: 70 MG PO (01-4)
     Route: 048
     Dates: start: 20040412, end: 20040506
  2. INTTERFERON [Suspect]
     Indication: METASTATIC NEOPLASM
     Dosage: MU , SC (01-4)
     Route: 058
     Dates: start: 20040412, end: 20040506
  3. TAXOTERE [Suspect]
     Indication: METASTATIC NEOPLASM
     Dosage: 74 MG IV (D2)
     Route: 042
     Dates: start: 20040413, end: 20040504
  4. ESTRAMUSTINE [Suspect]
     Indication: METASTATIC NEOPLASM
     Dosage: 840 MG PO TID
     Route: 048
     Dates: start: 20040412, end: 20040507
  5. ESCITALOPRAM OXALATE [Concomitant]
  6. ZYRTEC [Concomitant]
  7. PRILOSEC [Concomitant]
  8. VIAGRA [Concomitant]
  9. SYNTHROID [Concomitant]
  10. SAW PALMOTTO [Concomitant]
  11. M.V.I. [Concomitant]
  12. VITAMIN B COMPLEX CAP [Concomitant]

REACTIONS (4)
  - ARTERIAL DISORDER [None]
  - DISEASE PROGRESSION [None]
  - HAEMORRHAGE [None]
  - PYREXIA [None]
